FAERS Safety Report 5525061-8 (Version None)
Quarter: 2007Q4

REPORT INFORMATION
  Report Type: 
  Country: None (occurrence: None)
  Receive Date: 20071126
  Receipt Date: 20071112
  Transmission Date: 20080405
  Serious: Yes (Other)
  Sender: FDA-Public Use
  Company Number: DE-NOVOPROD-269527

PATIENT

DRUGS (5)
  1. NOVOSEVEN [Suspect]
     Dosage: 110 UG/KG, 150 MIN AFTER ECMO START
     Route: 042
  2. NOVOSEVEN [Suspect]
     Dosage: 270 MIN AFTER ECMO START
     Route: 042
  3. NOVOSEVEN [Suspect]
     Dosage: 515 MIN AFTER ECMO START
     Route: 042
  4. APROTININ [Concomitant]
  5. FACTOR XIII [Concomitant]

REACTIONS (1)
  - MEDICAL DEVICE COMPLICATION [None]
